FAERS Safety Report 7645742-X (Version None)
Quarter: 2011Q3

REPORT INFORMATION
  Report Type: 
  Country: None (occurrence: None)
  Receive Date: 20110729
  Receipt Date: 20110725
  Transmission Date: 20111222
  Serious: Yes (Other)
  Sender: FDA-Public Use
  Company Number: US-ABBOTT-11P-163-0841566-00

PATIENT
  Weight: 72.64 kg

DRUGS (14)
  1. ALBUTOROL [Concomitant]
     Indication: ASTHMA
     Dosage: 2 PUFFS TWICE A DAY PRN
  2. TRAZODONE HCL [Concomitant]
     Indication: INSOMNIA
     Dosage: 2 AT BEDTIME
  3. PREDNISONE [Concomitant]
     Indication: GOUT
  4. ZEMPLAR [Suspect]
     Indication: NEPHROPATHY
     Dates: start: 20090701, end: 20090909
  5. ZEMPLAR [Suspect]
     Dates: start: 20090910
  6. ZOCOR [Concomitant]
     Indication: BLOOD CHOLESTEROL INCREASED
     Route: 048
  7. PREDNISONE [Concomitant]
     Indication: SWELLING
  8. BROMAMINE [Concomitant]
     Indication: HYPERSENSITIVITY
     Dosage: 15 MCG MORNING AND NIGHT
  9. NASONEX [Concomitant]
     Indication: RHINITIS
     Dosage: 2 SPRAYS IN EACH NOSTRIL
     Route: 045
  10. SODIUM BICARBONATE [Concomitant]
     Indication: NEPHROPATHY
  11. ALLOPURINOL [Concomitant]
     Indication: GOUT
  12. PEPCID [Concomitant]
     Indication: GASTROOESOPHAGEAL REFLUX DISEASE
     Route: 048
  13. COLCHICINE [Concomitant]
     Indication: GOUT
     Route: 048
  14. KLONOPIN [Concomitant]
     Indication: ANXIETY

REACTIONS (4)
  - GOUT [None]
  - PAIN IN EXTREMITY [None]
  - FLATULENCE [None]
  - OEDEMA PERIPHERAL [None]
